FAERS Safety Report 8962864 (Version 2)
Quarter: 2012Q4

REPORT INFORMATION
  Report Type: 
  Country: JP (occurrence: JP)
  Receive Date: 20121213
  Receipt Date: 20121231
  Transmission Date: 20130627
  Serious: Yes (Other)
  Sender: FDA-Public Use
  Company Number: PHHY2012JP114377

PATIENT
  Age: 47 Year
  Sex: Female

DRUGS (1)
  1. SANDIMMUN [Suspect]
     Indication: PSORIASIS
     Dosage: 100 mg, QD

REACTIONS (1)
  - Drug resistance [Unknown]
